FAERS Safety Report 9495746 (Version 2)
Quarter: 2013Q3

REPORT INFORMATION
  Report Type: Spontaneous
  Country: AU (occurrence: AU)
  Receive Date: 20130903
  Receipt Date: 20130903
  Transmission Date: 20140515
  Serious: Yes (Hospitalization, Other)
  Sender: FDA-Public Use
  Company Number: AU-BRISTOL-MYERS SQUIBB COMPANY-19210756

PATIENT
  Age: 68 Year
  Sex: Female

DRUGS (2)
  1. YERVOY [Suspect]
     Dates: start: 20120130, end: 20121016
  2. PHENYTOIN [Suspect]

REACTIONS (4)
  - Hypophysitis [Recovered/Resolved]
  - Subdural haematoma [Unknown]
  - Malignant neoplasm progression [Unknown]
  - Rash [Unknown]
